FAERS Safety Report 10974346 (Version 1)
Quarter: 2015Q1

REPORT INFORMATION
  Report Type: Spontaneous
  Country: US (occurrence: None)
  Receive Date: 20150226
  Receipt Date: 20150226
  Transmission Date: 20150721
  Serious: No
  Sender: FDA-Public Use
  Company Number: TPA2010A05687

PATIENT
  Age: 69 Year
  Sex: Male
  Weight: 82.56 kg

DRUGS (5)
  1. CARVEDIOL [Concomitant]
     Active Substance: CARVEDILOL
  2. ULORIC [Suspect]
     Active Substance: FEBUXOSTAT
     Indication: GOUT
     Route: 048
     Dates: start: 201008
  3. PREDNISONE. [Concomitant]
     Active Substance: PREDNISONE
  4. NORVASC [Concomitant]
     Active Substance: AMLODIPINE BESYLATE
  5. HYDROCODONE [Concomitant]
     Active Substance: HYDROCODONE

REACTIONS (1)
  - Gout [None]
